FAERS Safety Report 22069043 (Version 1)
Quarter: 2023Q1

REPORT INFORMATION
  Report Type: Spontaneous
  Country: US (occurrence: US)
  Receive Date: 20230307
  Receipt Date: 20230307
  Transmission Date: 20230418
  Serious: No
  Sender: FDA-Public Use
  Company Number: US-AMNEAL PHARMACEUTICALS-2022-AMRX-01117

PATIENT
  Sex: Male

DRUGS (1)
  1. RYTARY [Suspect]
     Active Substance: CARBIDOPA\LEVODOPA
     Indication: Product used for unknown indication
     Dosage: 3 CAPSULES, 3 /DAY
     Route: 048

REACTIONS (8)
  - Chest discomfort [Unknown]
  - Dysarthria [Unknown]
  - Abdominal pain upper [Unknown]
  - Chills [Unknown]
  - Lip swelling [Unknown]
  - Dyspnoea [Unknown]
  - Pyrexia [Unknown]
  - Headache [Unknown]
